FAERS Safety Report 23604829 (Version 2)
Quarter: 2024Q1

REPORT INFORMATION
  Report Type: Spontaneous
  Country: US (occurrence: US)
  Receive Date: 20240307
  Receipt Date: 20240318
  Transmission Date: 20240410
  Serious: Yes (Hospitalization)
  Sender: FDA-Public Use
  Company Number: US-AMGEN-USASP2024042985

PATIENT
  Age: 57 Year
  Sex: Female
  Weight: 135 kg

DRUGS (13)
  1. CORLANOR [Suspect]
     Active Substance: IVABRADINE HYDROCHLORIDE
     Indication: Postural orthostatic tachycardia syndrome
     Dosage: 2.5 MILLIGRAM (ONE OR TWO TIMES A DAY)
     Route: 065
     Dates: start: 2022, end: 2024
  2. AGALSIDASE BETA [Concomitant]
     Active Substance: AGALSIDASE BETA
     Dosage: UNK
     Route: 065
  3. AMYLASE [Concomitant]
     Active Substance: AMYLASE
     Dosage: UNK
     Route: 065
  4. BENADRYL [Concomitant]
     Active Substance: DIPHENHYDRAMINE HYDROCHLORIDE
     Dosage: UNK
     Route: 065
  5. HERBALS [Concomitant]
     Active Substance: HERBALS
     Indication: Product used for unknown indication
     Dosage: UNK
     Route: 065
  6. LACTASE [Concomitant]
     Active Substance: LACTASE
     Dosage: UNK
     Route: 065
  7. LIPASE [Concomitant]
     Active Substance: LIPASE
     Indication: Product used for unknown indication
     Dosage: UNK
     Route: 065
  8. LORATADINE [Concomitant]
     Active Substance: LORATADINE
     Dosage: 10 MILLIGRAM
     Route: 065
  9. PROTEASE [Concomitant]
     Active Substance: PROTEASE
     Dosage: UNK
     Route: 065
  10. YEAST [Concomitant]
     Active Substance: YEAST
     Dosage: UNK
     Route: 065
  11. CELLULASE [Concomitant]
     Active Substance: CELLULASE
     Dosage: UNK
     Route: 065
  12. PECTINASE [Concomitant]
     Dosage: UNK
     Route: 065
  13. PEPTIDASE [Concomitant]
     Dosage: UNK
     Route: 065

REACTIONS (11)
  - Cardiac arrest [Unknown]
  - Oral candidiasis [Unknown]
  - Irritable bowel syndrome [Unknown]
  - Gastrointestinal bacterial overgrowth [Recovering/Resolving]
  - Hypotension [Unknown]
  - Dizziness [Unknown]
  - Asthenia [Unknown]
  - Weight decreased [Unknown]
  - Heart rate increased [Unknown]
  - Illness [Unknown]
  - Off label use [Unknown]

NARRATIVE: CASE EVENT DATE: 20231022
